FAERS Safety Report 15352944 (Version 2)
Quarter: 2018Q3

REPORT INFORMATION
  Report Type: Spontaneous
  Country: KR (occurrence: KR)
  Receive Date: 20180905
  Receipt Date: 20180913
  Transmission Date: 20181010
  Serious: Yes (Other)
  Sender: FDA-Public Use
  Company Number: KR-ALLERGAN-1842663US

PATIENT
  Age: 56 Year
  Sex: Female

DRUGS (10)
  1. OCULAR LUBRICANT [Concomitant]
     Indication: NECROTISING SCLERITIS
     Dosage: UNK UNK, QD
  2. METHYLPREDNISOLONE. [Suspect]
     Active Substance: METHYLPREDNISOLONE
     Indication: NECROTISING SCLERITIS
     Dosage: 1000 MG, QD
     Route: 042
  3. NAPROXEN. [Concomitant]
     Active Substance: NAPROXEN
     Indication: NECROTISING SCLERITIS
     Dosage: 500 MG, QD
  4. PREDNISOLONE UNK [Suspect]
     Active Substance: PREDNISOLONE
     Dosage: UNK, QID
     Route: 061
  5. TRIAMCINOLONE [Suspect]
     Active Substance: TRIAMCINOLONE
     Dosage: 32 MG, QD
     Route: 048
  6. PREDNISOLONE UNK [Suspect]
     Active Substance: PREDNISOLONE
     Indication: NECROTISING SCLERITIS
     Dosage: UNK
     Route: 061
  7. TRIAMCINOLONE [Suspect]
     Active Substance: TRIAMCINOLONE
     Indication: NECROTISING SCLERITIS
     Dosage: 5 DF IN TOTAL
     Route: 057
  8. TRIAMCINOLONE [Suspect]
     Active Substance: TRIAMCINOLONE
     Dosage: 32 MG, QD
     Route: 048
  9. TACROLIMUS MONOHYDRATE [Concomitant]
     Active Substance: TACROLIMUS
     Indication: NECROTISING SCLERITIS
     Dosage: UNK UNK, QD
  10. LEVOFLOXACIN. [Concomitant]
     Active Substance: LEVOFLOXACIN
     Indication: NECROTISING SCLERITIS
     Dosage: UNK UNK, QID
     Route: 061

REACTIONS (1)
  - Cataract [Unknown]
